FAERS Safety Report 7541872-1 (Version None)
Quarter: 2011Q2

REPORT INFORMATION
  Report Type: 
  Country: None (occurrence: None)
  Receive Date: 20110613
  Receipt Date: 20110531
  Transmission Date: 20111010
  Serious: Yes (Other)
  Sender: FDA-Public Use
  Company Number: US-ELI_LILLY_AND_COMPANY-US201004006441

PATIENT
  Sex: Male

DRUGS (5)
  1. TRIMOX [Concomitant]
     Indication: ERECTILE DYSFUNCTION
     Dosage: 1 DF, UNK
     Route: 011
  2. ZOLPIDEM TARTRATE [Concomitant]
     Indication: SLEEP DISORDER
  3. CIALIS [Suspect]
     Dosage: 20 MG, UNK
     Dates: start: 20110513
  4. CIALIS [Suspect]
     Indication: ERECTILE DYSFUNCTION
     Dosage: 20 MG, AS NEEDED
     Dates: start: 20080918
  5. CIALIS [Suspect]
     Dosage: 5 MG, QD
     Dates: start: 20110514

REACTIONS (5)
  - SHOULDER OPERATION [None]
  - ROAD TRAFFIC ACCIDENT [None]
  - NERVE COMPRESSION [None]
  - DRUG INEFFECTIVE [None]
  - INTERVERTEBRAL DISC PROTRUSION [None]
